FAERS Safety Report 10379079 (Version 3)
Quarter: 2014Q3

REPORT INFORMATION
  Report Type: Report from Study
  Country: FR (occurrence: FR)
  Receive Date: 20140812
  Receipt Date: 20140923
  Transmission Date: 20150326
  Serious: Yes (Death, Disabling, Other)
  Sender: FDA-Public Use
  Company Number: FR-BAYER-2013-047481

PATIENT
  Age: 65 Year
  Sex: Male

DRUGS (5)
  1. REGORAFENIB [Suspect]
     Active Substance: REGORAFENIB
     Dosage: DAILY DOSE 120 MG
     Route: 048
     Dates: start: 20130507, end: 20130617
  2. CORDARONE [Concomitant]
     Active Substance: AMIODARONE HYDROCHLORIDE
     Dosage: 1 DF, QD
     Dates: end: 20130315
  3. HEMIGOXINE [Concomitant]
     Active Substance: DIGOXIN
     Indication: ARRHYTHMIA
     Dosage: 1 DF, QD
     Dates: start: 20130316
  4. REGORAFENIB [Suspect]
     Active Substance: REGORAFENIB
     Dosage: DAILY DOSE 160 MG
     Route: 048
     Dates: start: 20130323
  5. REGORAFENIB [Suspect]
     Active Substance: REGORAFENIB
     Dosage: DAILY DOSE 120 MG
     Route: 048
     Dates: start: 20130327, end: 20130430

REACTIONS (20)
  - Anaemia [Recovered/Resolved]
  - Dehydration [Recovered/Resolved]
  - Dyspnoea exertional [Recovered/Resolved]
  - Colon cancer [None]
  - Fatigue [Recovered/Resolved]
  - Asthenia [Fatal]
  - Nausea [Recovered/Resolved]
  - Cardiac flutter [None]
  - Blood bilirubin increased [None]
  - Haemorrhoids [Recovered/Resolved]
  - General physical health deterioration [Recovered/Resolved]
  - Hyperthyroidism [None]
  - Dysphonia [Recovered/Resolved]
  - Blood thyroid stimulating hormone abnormal [None]
  - Fatigue [Recovering/Resolving]
  - Blood count abnormal [Recovered/Resolved]
  - Diarrhoea [Recovered/Resolved]
  - Aspartate aminotransferase increased [None]
  - Diarrhoea [Recovered/Resolved]
  - Decreased appetite [Recovered/Resolved]

NARRATIVE: CASE EVENT DATE: 20130325
